FAERS Safety Report 20534300 (Version 4)
Quarter: 2022Q2

REPORT INFORMATION
  Report Type: Other
  Country: KR (occurrence: None)
  Receive Date: 20220301
  Receipt Date: 20220606
  Transmission Date: 20220720
  Serious: Yes (Hospitalization, Other)
  Sender: FDA-Public Use
  Company Number: KR-ROCHE-3033530

PATIENT
  Age: 85 Year
  Sex: Female
  Weight: 57.8 kg

DRUGS (57)
  1. ATEZOLIZUMAB [Suspect]
     Active Substance: ATEZOLIZUMAB
     Indication: Small cell lung cancer extensive stage
     Route: 041
     Dates: start: 20210602
  2. ATEZOLIZUMAB [Suspect]
     Active Substance: ATEZOLIZUMAB
     Route: 041
     Dates: start: 20210623
  3. ATEZOLIZUMAB [Suspect]
     Active Substance: ATEZOLIZUMAB
     Route: 041
     Dates: start: 20210804
  4. ATEZOLIZUMAB [Suspect]
     Active Substance: ATEZOLIZUMAB
     Route: 041
     Dates: start: 20210826
  5. ATEZOLIZUMAB [Suspect]
     Active Substance: ATEZOLIZUMAB
     Route: 041
     Dates: start: 20210916
  6. ATEZOLIZUMAB [Suspect]
     Active Substance: ATEZOLIZUMAB
     Route: 041
     Dates: start: 20211007
  7. ATEZOLIZUMAB [Suspect]
     Active Substance: ATEZOLIZUMAB
     Route: 041
     Dates: start: 20211028
  8. ATEZOLIZUMAB [Suspect]
     Active Substance: ATEZOLIZUMAB
     Route: 041
     Dates: start: 20211122
  9. ATEZOLIZUMAB [Suspect]
     Active Substance: ATEZOLIZUMAB
     Route: 041
     Dates: start: 20211213
  10. ATEZOLIZUMAB [Suspect]
     Active Substance: ATEZOLIZUMAB
     Route: 041
     Dates: start: 20220101
  11. ATEZOLIZUMAB [Suspect]
     Active Substance: ATEZOLIZUMAB
     Route: 041
     Dates: start: 20220124
  12. ATEZOLIZUMAB [Suspect]
     Active Substance: ATEZOLIZUMAB
     Route: 041
     Dates: start: 20210714
  13. CARBOPLATIN [Suspect]
     Active Substance: CARBOPLATIN
     Indication: Small cell lung cancer extensive stage
     Route: 042
     Dates: start: 20210602
  14. CARBOPLATIN [Suspect]
     Active Substance: CARBOPLATIN
     Route: 042
     Dates: start: 20210623
  15. CARBOPLATIN [Suspect]
     Active Substance: CARBOPLATIN
     Route: 042
     Dates: start: 20210804
  16. CARBOPLATIN [Suspect]
     Active Substance: CARBOPLATIN
     Route: 042
     Dates: start: 20210714
  17. ETOPOSIDE [Suspect]
     Active Substance: ETOPOSIDE
     Indication: Small cell lung cancer extensive stage
     Route: 042
     Dates: start: 20210602
  18. ETOPOSIDE [Suspect]
     Active Substance: ETOPOSIDE
     Route: 042
     Dates: start: 20210603
  19. ETOPOSIDE [Suspect]
     Active Substance: ETOPOSIDE
     Route: 042
     Dates: start: 20210604
  20. ETOPOSIDE [Suspect]
     Active Substance: ETOPOSIDE
     Route: 042
     Dates: start: 20210623
  21. ETOPOSIDE [Suspect]
     Active Substance: ETOPOSIDE
     Route: 042
     Dates: start: 20210624
  22. ETOPOSIDE [Suspect]
     Active Substance: ETOPOSIDE
     Route: 042
     Dates: start: 20210625
  23. ETOPOSIDE [Suspect]
     Active Substance: ETOPOSIDE
     Route: 042
     Dates: start: 20210715
  24. ETOPOSIDE [Suspect]
     Active Substance: ETOPOSIDE
     Route: 042
     Dates: start: 20210716
  25. ETOPOSIDE [Suspect]
     Active Substance: ETOPOSIDE
     Route: 042
     Dates: start: 20210804
  26. ETOPOSIDE [Suspect]
     Active Substance: ETOPOSIDE
     Route: 042
     Dates: start: 20210805
  27. ETOPOSIDE [Suspect]
     Active Substance: ETOPOSIDE
     Route: 042
     Dates: start: 20210806
  28. ETOPOSIDE [Suspect]
     Active Substance: ETOPOSIDE
     Route: 042
     Dates: start: 20210714
  29. PIPERACILLIN SODIUM\TAZOBACTAM SODIUM [Concomitant]
     Active Substance: PIPERACILLIN SODIUM\TAZOBACTAM SODIUM
     Indication: Pneumonia
     Dates: start: 20210524, end: 20210606
  30. LEVOFLOXACIN [Concomitant]
     Active Substance: LEVOFLOXACIN
     Indication: Pneumonia
     Dates: start: 20210524, end: 20210603
  31. ASPIRIN [Concomitant]
     Active Substance: ASPIRIN
     Indication: Angina pectoris
     Dates: start: 20160411
  32. BISOPROLOL FUMARATE [Concomitant]
     Active Substance: BISOPROLOL FUMARATE
     Indication: Angina pectoris
     Dates: start: 20170302
  33. CADUET [Concomitant]
     Active Substance: AMLODIPINE BESYLATE\ATORVASTATIN CALCIUM
     Indication: Angina pectoris
     Dates: start: 20100128
  34. SYNTHROID [Concomitant]
     Active Substance: LEVOTHYROXINE SODIUM
     Indication: Hypothyroidism
     Dates: start: 20201008
  35. CODAEWON [Concomitant]
     Dates: start: 20180315
  36. AKYNZEO [Concomitant]
     Dates: start: 20210602, end: 20210602
  37. MEGACE F [Concomitant]
     Dates: start: 20110604, end: 20210611
  38. BANAN [Concomitant]
     Active Substance: CEFPODOXIME PROXETIL
     Dates: start: 20210604, end: 20210611
  39. AKYNZEO [Concomitant]
     Dates: start: 20210714, end: 20210714
  40. AKYNZEO [Concomitant]
     Dates: start: 20210804, end: 20210804
  41. ACETYLCYSTEINE [Concomitant]
     Active Substance: ACETYLCYSTEINE
     Dates: start: 20220124, end: 20220124
  42. ACETYLCYSTEINE [Concomitant]
     Active Substance: ACETYLCYSTEINE
     Dates: start: 20220124, end: 20220126
  43. FILGRASTIM [Concomitant]
     Active Substance: FILGRASTIM
     Dates: start: 20210614, end: 20210614
  44. CEFTRIAXONE [Concomitant]
     Active Substance: CEFTRIAXONE
     Dates: start: 20211103, end: 20211104
  45. SODIUM BICARBONATE [Concomitant]
     Active Substance: SODIUM BICARBONATE
     Dates: start: 20211103, end: 20211104
  46. PIPERACILLIN SODIUM\TAZOBACTAM SODIUM [Concomitant]
     Active Substance: PIPERACILLIN SODIUM\TAZOBACTAM SODIUM
     Dates: start: 20211104, end: 20211109
  47. LEVOFLOXACIN [Concomitant]
     Active Substance: LEVOFLOXACIN
     Dates: start: 20211104, end: 20211109
  48. LEVOFLOXACIN [Concomitant]
     Active Substance: LEVOFLOXACIN
     Dates: start: 20211110, end: 20211117
  49. HUMULIN R [Concomitant]
     Active Substance: INSULIN HUMAN
     Dates: start: 20211103, end: 20211104
  50. POTASSIUM CHLORIDE [Concomitant]
     Active Substance: POTASSIUM CHLORIDE
     Dates: start: 20211104, end: 20211105
  51. TRESIBA [Concomitant]
     Active Substance: INSULIN DEGLUDEC
     Dates: start: 20211105
  52. APIDRA SOLOSTAR [Concomitant]
     Active Substance: INSULIN GLULISINE
     Dates: start: 20211105
  53. NEXIUM [Concomitant]
     Active Substance: ESOMEPRAZOLE MAGNESIUM
     Dates: start: 20211110, end: 20211117
  54. GASTIN CR [Concomitant]
     Dates: start: 20211110, end: 20211117
  55. ACETYLCYSTEINE [Concomitant]
     Active Substance: ACETYLCYSTEINE
     Dates: start: 20220124, end: 20220124
  56. ACETYLCYSTEINE [Concomitant]
     Active Substance: ACETYLCYSTEINE
     Dates: start: 20220124, end: 20220126
  57. SODIUM CHLORIDE [Concomitant]
     Active Substance: SODIUM CHLORIDE
     Dates: start: 20211104, end: 20211104

REACTIONS (5)
  - Diabetes mellitus [Not Recovered/Not Resolved]
  - Neutrophil count decreased [Recovered/Resolved]
  - Urinary tract infection [Recovered/Resolved]
  - Diabetic ketoacidosis [Recovered/Resolved]
  - Osteoporosis [Not Recovered/Not Resolved]

NARRATIVE: CASE EVENT DATE: 20210614
